FAERS Safety Report 6243212-7 (Version None)
Quarter: 2009Q2

REPORT INFORMATION
  Report Type: 
  Country: None (occurrence: None)
  Receive Date: 20090624
  Receipt Date: 20090617
  Transmission Date: 20091009
  Serious: No
  Sender: FDA-Public Use
  Company Number: US-JNJFOC-20090607151

PATIENT
  Sex: Female
  Weight: 68.04 kg

DRUGS (5)
  1. FENTANYL TRANSDERMAL SYSTEM [Suspect]
     Route: 062
  2. FENTANYL TRANSDERMAL SYSTEM [Suspect]
     Indication: PAIN
     Dosage: EVERY 48-72 HOURS
     Route: 062
  3. LEVOXYL [Concomitant]
     Indication: THYROID DISORDER
     Route: 048
  4. EFFEXOR XR [Concomitant]
     Indication: ANTIDEPRESSANT THERAPY
     Route: 048
  5. MOBIC [Concomitant]
     Indication: ANTIINFLAMMATORY THERAPY
     Route: 048

REACTIONS (8)
  - ADVERSE DRUG REACTION [None]
  - DRUG EFFECT INCREASED [None]
  - DRUG PRESCRIBING ERROR [None]
  - HYPOTENSION [None]
  - OVERDOSE [None]
  - SEDATION [None]
  - SOMNOLENCE [None]
  - TREATMENT NONCOMPLIANCE [None]
